FAERS Safety Report 13239047 (Version 1)
Quarter: 2017Q1

REPORT INFORMATION
  Report Type: Spontaneous
  Country: FR (occurrence: FR)
  Receive Date: 20170216
  Receipt Date: 20170216
  Transmission Date: 20170428
  Serious: Yes (Hospitalization, Other)
  Sender: FDA-Public Use
  Company Number: FR-BAXTER-2017BAX005514

PATIENT
  Age: 54 Year
  Sex: Female

DRUGS (38)
  1. METOCLOPRAMIDE. [Suspect]
     Active Substance: METOCLOPRAMIDE
     Dosage: ON REQUEST
     Route: 048
     Dates: start: 20161208
  2. PARACETAMOL [Suspect]
     Active Substance: ACETAMINOPHEN
     Dosage: ON REQUEST
     Route: 048
     Dates: start: 20161214, end: 20161227
  3. PARACETAMOL [Suspect]
     Active Substance: ACETAMINOPHEN
     Dosage: ON REQUEST
     Route: 048
     Dates: start: 20170111
  4. ACUPAN [Suspect]
     Active Substance: NEFOPAM HYDROCHLORIDE
     Dosage: ON REQUEST
     Route: 048
     Dates: start: 20170102, end: 20170102
  5. SODIUM BICARBONATE. [Concomitant]
     Active Substance: SODIUM BICARBONATE
     Indication: PRODUCT USED FOR UNKNOWN INDICATION
     Route: 065
  6. PULMOZYME [Concomitant]
     Active Substance: DORNASE ALFA
     Indication: PRODUCT USED FOR UNKNOWN INDICATION
     Route: 065
  7. METOCLOPRAMIDE. [Suspect]
     Active Substance: METOCLOPRAMIDE
     Dosage: ON REQUEST
     Route: 048
     Dates: start: 20161216
  8. METOCLOPRAMIDE. [Suspect]
     Active Substance: METOCLOPRAMIDE
     Dosage: ON REQUEST
     Route: 048
     Dates: start: 20161227, end: 20161227
  9. VALSARTAN. [Suspect]
     Active Substance: VALSARTAN
     Indication: HYPERTENSION
     Route: 048
     Dates: end: 20161227
  10. TOPALGIC [Suspect]
     Active Substance: TRAMADOL
     Indication: PAIN
     Route: 048
     Dates: start: 20161124, end: 20161130
  11. TOPALGIC [Suspect]
     Active Substance: TRAMADOL
     Route: 048
     Dates: start: 20161225, end: 20161226
  12. PARACETAMOL [Suspect]
     Active Substance: ACETAMINOPHEN
     Dosage: ON REQUEST
     Route: 048
     Dates: start: 20170107
  13. ALPRAZOLAM. [Suspect]
     Active Substance: ALPRAZOLAM
     Dosage: ON REQUEST
     Route: 048
     Dates: start: 20161207, end: 20161216
  14. LOVENOX [Suspect]
     Active Substance: ENOXAPARIN SODIUM
     Indication: PRODUCT USED FOR UNKNOWN INDICATION
     Route: 065
     Dates: start: 20161226
  15. EXOMUC [Concomitant]
     Active Substance: ACETYLCYSTEINE
     Indication: PRODUCT USED FOR UNKNOWN INDICATION
     Route: 065
  16. AMPHOTERICIN B. [Concomitant]
     Active Substance: AMPHOTERICIN B
     Indication: PRODUCT USED FOR UNKNOWN INDICATION
     Route: 065
  17. CYMBALTA [Suspect]
     Active Substance: DULOXETINE HYDROCHLORIDE
     Dosage: ENTERIC COATED CAPUSLE
     Route: 048
     Dates: start: 20170111
  18. AZANTAC [Concomitant]
     Active Substance: RANITIDINE HYDROCHLORIDE
     Indication: GASTROOESOPHAGEAL REFLUX DISEASE
     Route: 048
  19. ACUPAN [Suspect]
     Active Substance: NEFOPAM HYDROCHLORIDE
     Dosage: ON REQUEST
     Route: 048
     Dates: start: 20161212
  20. ACUPAN [Suspect]
     Active Substance: NEFOPAM HYDROCHLORIDE
     Dosage: ON REQUEST
     Route: 048
     Dates: start: 20161226, end: 20161230
  21. TOPALGIC [Suspect]
     Active Substance: TRAMADOL
     Route: 048
     Dates: start: 20161222, end: 20161223
  22. METOCLOPRAMIDE. [Suspect]
     Active Substance: METOCLOPRAMIDE
     Indication: PRODUCT USED FOR UNKNOWN INDICATION
     Dosage: ON REQUEST
     Route: 048
     Dates: start: 20161124, end: 20161128
  23. CYMBALTA [Suspect]
     Active Substance: DULOXETINE HYDROCHLORIDE
     Indication: DEPRESSION
     Dosage: ENTERIC COATED CAPUSLE
     Route: 048
     Dates: end: 20161227
  24. PARACETAMOL [Suspect]
     Active Substance: ACETAMINOPHEN
     Indication: PAIN
     Dosage: ON REQUEST
     Route: 048
     Dates: start: 20161123, end: 20161206
  25. ALPRAZOLAM. [Suspect]
     Active Substance: ALPRAZOLAM
     Indication: PRODUCT USED FOR UNKNOWN INDICATION
     Dosage: ON REQUEST
     Route: 048
     Dates: start: 20161128, end: 20161204
  26. ACUPAN [Suspect]
     Active Substance: NEFOPAM HYDROCHLORIDE
     Dosage: ON REQUEST
     Route: 048
     Dates: start: 20161202, end: 20161204
  27. DIAZEPAM. [Concomitant]
     Active Substance: DIAZEPAM
     Indication: PRODUCT USED FOR UNKNOWN INDICATION
     Route: 048
  28. INEXIUM [Concomitant]
     Active Substance: ESOMEPRAZOLE
     Indication: GASTROOESOPHAGEAL REFLUX DISEASE
     Dosage: ENTERIC-COATED TABLET
     Route: 048
  29. DIFFU K [Concomitant]
     Active Substance: POTASSIUM CHLORIDE
     Indication: PRODUCT USED FOR UNKNOWN INDICATION
     Route: 065
  30. DOLIPRANE [Concomitant]
     Active Substance: ACETAMINOPHEN
     Indication: PRODUCT USED FOR UNKNOWN INDICATION
     Route: 065
  31. SALBUTAMOL [Concomitant]
     Active Substance: ALBUTEROL
     Indication: PRODUCT USED FOR UNKNOWN INDICATION
     Dosage: LONG TERM TREATMENT
     Route: 065
  32. UROMITEXAN 400 MG, COMPRIM? PELLICUL? S?CABLE [Suspect]
     Active Substance: MESNA
     Indication: TRACHEOMALACIA
     Route: 048
     Dates: start: 20161125, end: 20161226
  33. PARACETAMOL [Suspect]
     Active Substance: ACETAMINOPHEN
     Dosage: ON REQUEST
     Route: 048
     Dates: start: 20161208, end: 20161211
  34. PARACETAMOL [Suspect]
     Active Substance: ACETAMINOPHEN
     Dosage: ON REQUEST
     Route: 048
     Dates: start: 20170109
  35. ALPRAZOLAM. [Suspect]
     Active Substance: ALPRAZOLAM
     Dosage: ON REQUEST
     Route: 048
     Dates: start: 20161230, end: 20161230
  36. ACUPAN [Suspect]
     Active Substance: NEFOPAM HYDROCHLORIDE
     Indication: PAIN
     Dosage: ON REQUEST
     Route: 048
     Dates: start: 20161124, end: 20161130
  37. DULOXETINE. [Concomitant]
     Active Substance: DULOXETINE
     Indication: PRODUCT USED FOR UNKNOWN INDICATION
     Route: 065
  38. VALIUM [Concomitant]
     Active Substance: DIAZEPAM
     Indication: PRODUCT USED FOR UNKNOWN INDICATION
     Dosage: LONG TERM TREATMENT
     Route: 065

REACTIONS (3)
  - Rhabdomyolysis [Recovered/Resolved]
  - Intra-abdominal haematoma [Unknown]
  - Dyspnoea [Unknown]

NARRATIVE: CASE EVENT DATE: 20161227
